FAERS Safety Report 10786875 (Version 1)
Quarter: 2015Q1

REPORT INFORMATION
  Report Type: Spontaneous
  Country: AT (occurrence: AT)
  Receive Date: 20150211
  Receipt Date: 20150211
  Transmission Date: 20150721
  Serious: Yes (Other)
  Sender: FDA-Public Use
  Company Number: AT-GLAXOSMITHKLINE-AT2015GSK015798

PATIENT
  Age: 73 Year
  Sex: Female
  Weight: 73.6 kg

DRUGS (27)
  1. LITHIUM [Suspect]
     Active Substance: LITHIUM CARBONATE
     Dosage: 450 UNK, UNK
     Dates: start: 20140123, end: 20140123
  2. RISPERDAL [Suspect]
     Active Substance: RISPERIDONE
     Dosage: 1 UNK, UNK
     Dates: start: 20140128, end: 20140128
  3. CEREBOKAN [Concomitant]
     Dosage: UNK
     Dates: start: 20131220
  4. XYZAL [Concomitant]
     Active Substance: LEVOCETIRIZINE DIHYDROCHLORIDE
     Dosage: 5 MG, UNK
     Dates: start: 20140131, end: 20140216
  5. MIRTAZAPINE. [Suspect]
     Active Substance: MIRTAZAPINE
     Indication: PRODUCT USED FOR UNKNOWN INDICATION
     Dosage: 30 MG, UNK
     Dates: start: 20131220, end: 20131223
  6. MIRTAZAPINE. [Suspect]
     Active Substance: MIRTAZAPINE
     Dosage: 60 MG, UNK
     Dates: start: 20131224, end: 20140122
  7. MIRTAZAPINE. [Suspect]
     Active Substance: MIRTAZAPINE
     Dosage: 30 UNK, UNK
     Dates: start: 20140123, end: 20140126
  8. SIMVASTATIN. [Concomitant]
     Active Substance: SIMVASTATIN
     Dosage: 20 MG, UNK
     Dates: start: 2013
  9. CONCOR [Concomitant]
     Active Substance: BISOPROLOL FUMARATE
     Dosage: 2.5 MG, UNK
     Dates: start: 2013
  10. LAMICTAL [Suspect]
     Active Substance: LAMOTRIGINE
     Indication: PRODUCT USED FOR UNKNOWN INDICATION
     Dosage: 200 MG, UNK
     Dates: start: 201311, end: 20140202
  11. RISPERDAL [Suspect]
     Active Substance: RISPERIDONE
     Indication: PRODUCT USED FOR UNKNOWN INDICATION
     Dosage: 2 MG, UNK
     Dates: start: 20140114, end: 20140114
  12. RISPERDAL [Suspect]
     Active Substance: RISPERIDONE
     Dosage: 3 UNK, UNK
     Dates: start: 20140115, end: 20140127
  13. RISPERDAL [Suspect]
     Active Substance: RISPERIDONE
     Dosage: 2 UNK, UNK
     Dates: start: 20140203
  14. PANTOLOC [Concomitant]
     Active Substance: PANTOPRAZOLE SODIUM
     Dosage: 40 MG, UNK
  15. NICORETTE [Concomitant]
     Active Substance: NICOTINE
     Dosage: 21 MG, UNK
     Route: 062
     Dates: start: 20131220, end: 20140217
  16. PROTHIPENDYL HYDROCHLORIDE [Concomitant]
     Active Substance: PROTHIPENDYL HYDROCHLORIDE
     Dosage: 80 MG, UNK
     Dates: start: 20131228, end: 20140106
  17. LITHIUM [Suspect]
     Active Substance: LITHIUM CARBONATE
     Indication: PRODUCT USED FOR UNKNOWN INDICATION
     Dosage: 450 MG, UNK
     Dates: start: 20140113, end: 20140114
  18. RIVOTRIL [Concomitant]
     Active Substance: CLONAZEPAM
     Dosage: .5 MG, UNK
     Dates: start: 20131220
  19. ELOMEL [Concomitant]
     Dosage: UNK
     Dates: start: 20140120, end: 20140120
  20. DULOXETINE HYDROCHLORIDE. [Suspect]
     Active Substance: DULOXETINE HYDROCHLORIDE
     Indication: PRODUCT USED FOR UNKNOWN INDICATION
     Dosage: 90 MG, UNK
     Dates: start: 201311
  21. COLECALCIFEROL [Concomitant]
     Active Substance: CHOLECALCIFEROL
     Dosage: UNK
     Dates: start: 2013
  22. LEXOTANIL [Concomitant]
     Active Substance: BROMAZEPAM
     Dosage: 3 MG, UNK
     Dates: start: 201311, end: 20131219
  23. LAMICTAL [Suspect]
     Active Substance: LAMOTRIGINE
     Dosage: 300 UNK, UNK
     Dates: start: 20140203
  24. MIRTAZAPINE. [Suspect]
     Active Substance: MIRTAZAPINE
     Dosage: 30 UNK, UNK
     Dates: start: 20140203, end: 20140206
  25. LITHIUM [Suspect]
     Active Substance: LITHIUM CARBONATE
     Dosage: 900 UNK, UNK
     Dates: start: 20140115, end: 20140119
  26. LITHIUM [Suspect]
     Active Substance: LITHIUM CARBONATE
     Dosage: 225 UNK, UNK
     Dates: start: 20140122, end: 20140122
  27. EXELON [Concomitant]
     Active Substance: RIVASTIGMINE TARTRATE
     Dosage: 4.6 MG, UNK
     Dates: start: 20131220

REACTIONS (2)
  - Eyelid oedema [Recovered/Resolved]
  - Oedema peripheral [Recovered/Resolved]

NARRATIVE: CASE EVENT DATE: 20140122
